FAERS Safety Report 7826786-1 (Version None)
Quarter: 2011Q4

REPORT INFORMATION
  Report Type: 
  Country: None (occurrence: None)
  Receive Date: 20111020
  Receipt Date: 20111008
  Transmission Date: 20120403
  Serious: Yes (Other)
  Sender: FDA-Public Use
  Company Number: HR-PAR PHARMACEUTICAL, INC-2011SCPR003286

PATIENT

DRUGS (26)
  1. TRAMADOL HYDROCHLORIDE AND ACETAMINOPHEN [Suspect]
     Indication: PRODUCT USED FOR UNKNOWN INDICATION
     Dosage: 3 X 2 UNKNOWN
     Route: 065
     Dates: start: 20070901
  2. SERTRALINE HYDROCHLORIDE [Suspect]
     Indication: PRODUCT USED FOR UNKNOWN INDICATION
     Dosage: 1 X 1 UNKNOWN
     Route: 065
     Dates: start: 20080501
  3. DIAZEPAM [Suspect]
     Indication: PRODUCT USED FOR UNKNOWN INDICATION
     Dosage: 5 MG, 0-0-1
     Route: 065
     Dates: start: 20070901
  4. LEVOTHYROXINE SODIUM [Concomitant]
     Indication: AUTOIMMUNE THYROIDITIS
     Dosage: 75 A?G, UNKNOWN
     Route: 065
     Dates: start: 20100301
  5. RANITIDINE [Concomitant]
     Indication: PRODUCT USED FOR UNKNOWN INDICATION
     Dosage: 2 X 150 MG, UNKNOWN
     Route: 065
     Dates: start: 20070901
  6. CARBAMAZEPINE [Suspect]
     Indication: PRODUCT USED FOR UNKNOWN INDICATION
     Dosage: 3X200 MG UNKNOWN
     Route: 065
     Dates: start: 20070901
  7. BUPRENORPHINE [Suspect]
     Indication: PRODUCT USED FOR UNKNOWN INDICATION
     Dosage: 70 A?G, / 72 H
     Route: 065
     Dates: start: 20090401
  8. OXYCODONE HCL [Suspect]
     Dosage: 10 MG, PP
     Route: 065
     Dates: start: 20100301
  9. ESOMEPRAZOL                        /01479301/ [Suspect]
     Indication: PRODUCT USED FOR UNKNOWN INDICATION
     Dosage: 2 X 20 MG, UNK
     Route: 065
     Dates: start: 20100301
  10. LEVOTHYROXINE SODIUM [Concomitant]
     Indication: HYPOTHYROIDISM
     Dosage: 50 A?G, UNKNOWN
     Route: 065
     Dates: start: 20070901
  11. GABAPENTIN [Suspect]
     Indication: PRODUCT USED FOR UNKNOWN INDICATION
     Dosage: 3X 300 MG, UNKNOWN
     Route: 065
     Dates: start: 20090401
  12. BACLOFEN [Suspect]
     Indication: PRODUCT USED FOR UNKNOWN INDICATION
     Dosage: 3 X 10 MG, UNKNOWN
     Route: 065
     Dates: start: 20070901
  13. PREGABALIN [Suspect]
     Indication: PRODUCT USED FOR UNKNOWN INDICATION
     Dosage: 2 X 300 MG, UNKNOWN
     Route: 065
     Dates: start: 20100301
  14. NEUROBION FORTE                    /00358301/ [Concomitant]
     Indication: PRODUCT USED FOR UNKNOWN INDICATION
     Dosage: 2 X 1 TABLET, UNKNOWN
     Route: 065
     Dates: start: 20080501
  15. TRAMADOL HYDROCHLORIDE AND ACETAMINOPHEN [Suspect]
     Dosage: UNK, PP
     Route: 065
     Dates: start: 20100301
  16. DIAZEPAM [Suspect]
     Dosage: 2 MG, 2 MG, 5 MG
     Route: 065
     Dates: start: 20100301
  17. FEXOFENADINE [Concomitant]
     Indication: PRODUCT USED FOR UNKNOWN INDICATION
     Dosage: 180 MG, UNKNOWN
     Route: 065
     Dates: start: 20100301
  18. GINKO BILOBA [Concomitant]
     Indication: PRODUCT USED FOR UNKNOWN INDICATION
     Dosage: 120 MG, UNKNOWN
     Route: 065
     Dates: start: 20100301
  19. OXYCODONE HCL [Suspect]
     Indication: PRODUCT USED FOR UNKNOWN INDICATION
     Dosage: 3 X 10 MG, UNKNOWN
     Route: 065
     Dates: start: 20090401
  20. IBUPROFEN [Concomitant]
     Indication: PRODUCT USED FOR UNKNOWN INDICATION
     Dosage: 400 MG, UNKNOWN
     Route: 065
     Dates: start: 20070301
  21. ALPRAZOLAM [Concomitant]
     Indication: PRODUCT USED FOR UNKNOWN INDICATION
     Dosage: 0.5 MG, 3 X 1
     Route: 065
     Dates: start: 20080501
  22. PANTOPRAZOLE [Concomitant]
     Indication: PRODUCT USED FOR UNKNOWN INDICATION
     Dosage: 20 MG, UNKNOWN
     Route: 065
     Dates: start: 20090401
  23. FENTANYL [Suspect]
     Indication: PRODUCT USED FOR UNKNOWN INDICATION
     Dosage: 100 A?G, / 72 H
     Route: 065
     Dates: start: 20100301, end: 20100301
  24. SERTRALINE HYDROCHLORIDE [Suspect]
     Dosage: 50 MG, 1 X 1
     Route: 065
     Dates: start: 20090401
  25. BACLOFEN [Suspect]
     Dosage: 3 X 25 MG
     Route: 065
     Dates: start: 20080501
  26. PIROXICAM [Concomitant]
     Indication: PRODUCT USED FOR UNKNOWN INDICATION
     Dosage: 20 MG, UNKNOWN
     Route: 065
     Dates: start: 20070901

REACTIONS (19)
  - COGNITIVE DISORDER [None]
  - PRURITUS [None]
  - TREATMENT FAILURE [None]
  - PAIN [None]
  - DEPRESSION [None]
  - ANXIETY [None]
  - VOMITING [None]
  - SYNCOPE [None]
  - CONFUSIONAL STATE [None]
  - FATIGUE [None]
  - DIZZINESS [None]
  - ATAXIA [None]
  - NAUSEA [None]
  - SEDATION [None]
  - CONSTIPATION [None]
  - DIPLOPIA [None]
  - HEADACHE [None]
  - OEDEMA [None]
  - ASTHENIA [None]
